FAERS Safety Report 10211087 (Version 1)
Quarter: 2014Q2

REPORT INFORMATION
  Report Type: Spontaneous
  Country: US (occurrence: None)
  Receive Date: 20140530
  Receipt Date: 20140530
  Transmission Date: 20141212
  Serious: Yes (Life-Threatening, Hospitalization, Disabling, Other)
  Sender: FDA-Public Use
  Company Number: None

PATIENT
  Age: 73 Year
  Sex: Female
  Weight: 67.13 kg

DRUGS (5)
  1. PROLIA [Suspect]
     Indication: OSTEOPOROSIS
     Dosage: 1 INJECTION EVERY 6 MONTHS INJECTION
     Dates: start: 20130204, end: 20140204
  2. LISINOPRIL [Concomitant]
  3. CITRACAL + D [Concomitant]
  4. LOW DOSE ASPIRIN [Concomitant]
  5. MULTIVITAMIN [Concomitant]

REACTIONS (7)
  - Malaise [None]
  - Influenza [None]
  - Immune system disorder [None]
  - Diverticulitis [None]
  - Drug ineffective [None]
  - Pain [None]
  - Cardiac arrest [None]
